FAERS Safety Report 9964882 (Version 1)
Quarter: 2014Q1

REPORT INFORMATION
  Report Type: Spontaneous
  Country: US (occurrence: US)
  Receive Date: 20140305
  Receipt Date: 20140305
  Transmission Date: 20141002
  Serious: No
  Sender: FDA-Public Use
  Company Number: US-AMGEN-USASP2014007641

PATIENT
  Age: 63 Year
  Sex: Female

DRUGS (9)
  1. ENBREL [Suspect]
     Indication: PRODUCT USED FOR UNKNOWN INDICATION
     Dosage: UNK
     Route: 058
  2. METHOTREXATE [Concomitant]
     Dosage: 2.5 MG, UNK
     Route: 065
  3. METOPROLOL [Concomitant]
     Dosage: 25 MG ER, UNK
     Route: 065
  4. SULINDAC [Concomitant]
     Dosage: 150 MG, UNK
     Route: 065
  5. VITAMIN D                          /00107901/ [Concomitant]
     Dosage: 1000 UNIT, UNK
     Route: 065
  6. CALCIUM [Concomitant]
     Dosage: 500 UNK, UNK
     Route: 065
  7. BIOTIN [Concomitant]
     Dosage: 5000 UNK, UNK
     Route: 065
  8. FOLIC ACID [Concomitant]
     Dosage: UNK
     Route: 065
  9. TRAMADOL                           /00599202/ [Concomitant]
     Dosage: 100 MG ER, UNK
     Route: 065

REACTIONS (1)
  - Vaccination complication [Unknown]
